FAERS Safety Report 4313871-4 (Version None)
Quarter: 2004Q1

REPORT INFORMATION
  Report Type: 
  Country: None (occurrence: None)
  Receive Date: 20040302
  Receipt Date: 20031104
  Transmission Date: 20041129
  Serious: Yes (Hospitalization)
  Sender: FDA-Public Use
  Company Number: WAES 0311USA00502

PATIENT
  Sex: Female

DRUGS (2)
  1. CANCIDAS [Suspect]
     Dosage: IV
     Route: 042
  2. [THERAPY UNSPECIFIED] [Concomitant]

REACTIONS (1)
  - THROMBOCYTOPENIA [None]
